FAERS Safety Report 8993349 (Version 1)
Quarter: 2013Q1

REPORT INFORMATION
  Report Type: Spontaneous
  Country: US (occurrence: US)
  Receive Date: 20130102
  Receipt Date: 20130102
  Transmission Date: 20140127
  Serious: Yes (Hospitalization)
  Sender: FDA-Public Use
  Company Number: US-INCYTE CORPORATION-2012IN002341

PATIENT
  Age: 70 Year
  Sex: Male
  Weight: 71.66 kg

DRUGS (5)
  1. JAKAFI [Suspect]
     Indication: MYELOFIBROSIS
     Dosage: 10 MG, TID
     Route: 048
     Dates: start: 20120319
  2. GABAPENTIN [Concomitant]
  3. METOPROLOL [Concomitant]
  4. RANITIDINE [Concomitant]
  5. OMEPRAZOLE [Concomitant]

REACTIONS (3)
  - Tendon rupture [Recovered/Resolved]
  - Haematoma [Recovered/Resolved]
  - Anaemia [Recovered/Resolved]
